FAERS Safety Report 13131846 (Version 3)
Quarter: 2017Q2

REPORT INFORMATION
  Report Type: Spontaneous
  Country: US (occurrence: US)
  Receive Date: 20170119
  Receipt Date: 20170403
  Transmission Date: 20170830
  Serious: Yes (Death, Hospitalization, Other)
  Sender: FDA-Public Use
  Company Number: US-ACTELION-A-US2017-148304

PATIENT
  Age: 86 Year
  Sex: Female

DRUGS (12)
  1. HYDROCHLOROTHIAZIDE. [Concomitant]
     Active Substance: HYDROCHLOROTHIAZIDE
  2. SINGULAIR [Concomitant]
     Active Substance: MONTELUKAST SODIUM
  3. FORMOTEROL FUMARATE [Concomitant]
     Active Substance: FORMOTEROL FUMARATE
  4. LIPITOR [Concomitant]
     Active Substance: ATORVASTATIN CALCIUM
  5. BYSTOLIC [Concomitant]
     Active Substance: NEBIVOLOL HYDROCHLORIDE
  6. QVAR [Concomitant]
     Active Substance: BECLOMETHASONE DIPROPIONATE
  7. VITAMIN B COMPLEX [Concomitant]
     Active Substance: CYANOCOBALAMIN\DEXPANTHENOL\NIACINAMIDE\PYRIDOXINE HYDROCHLORIDE\RIBOFLAVIN 5^-PHOSPHATE SODIUM\THIAMINE HYDROCHLORIDE\VITAMIN B COMPLEX
  8. BABY ASPIRIN [Concomitant]
     Active Substance: ASPIRIN
  9. NORVASC [Concomitant]
     Active Substance: AMLODIPINE BESYLATE
  10. SPIRIVA [Concomitant]
     Active Substance: TIOTROPIUM BROMIDE MONOHYDRATE
  11. OPSUMIT [Suspect]
     Active Substance: MACITENTAN
     Indication: PULMONARY ARTERIAL HYPERTENSION
     Dosage: 10 MG, QD
     Route: 048
     Dates: start: 20140611
  12. NEXIUM [Concomitant]
     Active Substance: ESOMEPRAZOLE MAGNESIUM

REACTIONS (6)
  - Chronic obstructive pulmonary disease [Fatal]
  - Cardiac disorder [Recovered/Resolved]
  - Drug dose omission [Unknown]
  - Dyspnoea [Unknown]
  - Fall [Unknown]
  - Loss of consciousness [Unknown]

NARRATIVE: CASE EVENT DATE: 20170301
